FAERS Safety Report 9126956 (Version 1)
Quarter: 2013Q1

REPORT INFORMATION
  Report Type: Spontaneous
  Country: US (occurrence: US)
  Receive Date: 20130228
  Receipt Date: 20130228
  Transmission Date: 20140127
  Serious: Yes (Other)
  Sender: FDA-Public Use
  Company Number: PHEH2013US004700

PATIENT
  Sex: Male

DRUGS (8)
  1. EXELON PATCH [Suspect]
     Dosage: 9.5 MG, QD
     Route: 062
  2. ARICEPT [Concomitant]
  3. LOPID [Concomitant]
     Dosage: UNK UKN, (TWICE DAILY)
  4. ACTOS [Concomitant]
  5. PLAVIX [Concomitant]
  6. ASPIRIN [Concomitant]
  7. LISINOPRIL [Concomitant]
  8. CARDIZEM [Concomitant]

REACTIONS (3)
  - Spinal column stenosis [Unknown]
  - Product adhesion issue [Unknown]
  - Wrong technique in drug usage process [Unknown]
